FAERS Safety Report 9008504 (Version 1)
Quarter: 2013Q1

REPORT INFORMATION
  Report Type: Spontaneous
  Country: IT (occurrence: IT)
  Receive Date: 20130111
  Receipt Date: 20130111
  Transmission Date: 20140127
  Serious: Yes (Other)
  Sender: FDA-Public Use
  Company Number: IT-PERRIGO-12IT011162

PATIENT
  Sex: Male

DRUGS (4)
  1. MESALAMINE [Suspect]
     Indication: CROHN^S DISEASE
     Dosage: UNK, UNK
     Route: 065
     Dates: start: 2002, end: 2009
  2. MESALAMINE [Suspect]
     Dosage: 1600 MG, BID
     Route: 065
     Dates: start: 2005
  3. PREDNISONE [Concomitant]
     Indication: CROHN^S DISEASE
     Dosage: UNK
     Route: 048
     Dates: start: 2008, end: 2009
  4. AZATHIOPRINE [Concomitant]
     Indication: CROHN^S DISEASE
     Route: 048
     Dates: start: 2008

REACTIONS (1)
  - Tubulointerstitial nephritis [Not Recovered/Not Resolved]
